FAERS Safety Report 8447889-7 (Version None)
Quarter: 2012Q2

REPORT INFORMATION
  Report Type: 
  Country: None (occurrence: None)
  Receive Date: 20120619
  Receipt Date: 20120608
  Transmission Date: 20120825
  Serious: Yes (Hospitalization)
  Sender: FDA-Public Use
  Company Number: FR-JNJFOC-20120605800

PATIENT
  Age: 64 Year
  Sex: Male

DRUGS (7)
  1. DUPHALAC [Concomitant]
     Indication: PRODUCT USED FOR UNKNOWN INDICATION
     Route: 065
  2. TOPIRAMATE [Suspect]
     Dosage: PROGRESSIVELY DECREASED IN STAGES OF 25MG
     Route: 048
     Dates: start: 20120227, end: 20120411
  3. TOPIRAMATE [Suspect]
     Indication: EPILEPSY
     Dosage: DOSAGE INCREASED UP TO 250 MG DAILY, IN 2 TIMES.
     Route: 048
  4. TOPIRAMATE [Suspect]
     Dosage: DOSAGE INCREASED UP TO 250 MG DAILY, IN 2 TIMES.
     Route: 048
     Dates: start: 20111208
  5. PRINCI-B [Concomitant]
     Indication: PRODUCT USED FOR UNKNOWN INDICATION
     Route: 065
  6. VENOFER [Concomitant]
     Indication: PRODUCT USED FOR UNKNOWN INDICATION
     Route: 065
  7. KEPPRA [Concomitant]
     Indication: PRODUCT USED FOR UNKNOWN INDICATION
     Route: 065

REACTIONS (1)
  - COGNITIVE DISORDER [None]
